FAERS Safety Report 14555153 (Version 1)
Quarter: 2018Q1

REPORT INFORMATION
  Report Type: Spontaneous
  Country: US (occurrence: US)
  Receive Date: 20180220
  Receipt Date: 20180220
  Transmission Date: 20180509
  Serious: No
  Sender: FDA-Public Use
  Company Number: US-IPSEN BIOPHARMACEUTICALS, INC.-2017-16368

PATIENT
  Age: 30 Week
  Sex: Female

DRUGS (1)
  1. DYSPORT [Suspect]
     Active Substance: ABOBOTULINUMTOXINA
     Indication: SKIN COSMETIC PROCEDURE
     Dosage: 40 UNITS
     Route: 065
     Dates: start: 20171116, end: 20171116

REACTIONS (3)
  - Head discomfort [Unknown]
  - Palpitations [Unknown]
  - Viral infection [Unknown]

NARRATIVE: CASE EVENT DATE: 20171130
